FAERS Safety Report 5142635-7 (Version None)
Quarter: 2006Q4

REPORT INFORMATION
  Report Type: 
  Country: None (occurrence: None)
  Receive Date: 20061102
  Receipt Date: 20060802
  Transmission Date: 20070319
  Serious: Yes (Death)
  Sender: FDA-Public Use
  Company Number: JP-BOEHRINGER INGELHEIM PHARMACEUTICALS, INC.-2006-BP-08846NB

PATIENT
  Age: 74 Year
  Sex: Female

DRUGS (4)
  1. BI-SIFROL TABLETS [Suspect]
     Indication: PARKINSON'S DISEASE
     Route: 048
     Dates: start: 20060101
  2. DIURETICS [Concomitant]
     Indication: CARDIAC FAILURE
     Route: 065
  3. ANGIOTENSIN CONVERTING ENZYME INHIBITERS [Concomitant]
     Indication: PULMONARY HYPERTENSION
     Route: 065
  4. SEROQUEL [Concomitant]
     Indication: HALLUCINATION

REACTIONS (5)
  - CARDIAC FAILURE [None]
  - DISSEMINATED INTRAVASCULAR COAGULATION [None]
  - NEUROLEPTIC MALIGNANT SYNDROME [None]
  - PNEUMONIA [None]
  - PULMONARY HYPERTENSION [None]
